FAERS Safety Report 15005340 (Version 1)
Quarter: 2018Q2

REPORT INFORMATION
  Report Type: Spontaneous
  Country: US (occurrence: US)
  Receive Date: 20180613
  Receipt Date: 20180613
  Transmission Date: 20180711
  Serious: Yes (Other)
  Sender: FDA-Public Use
  Company Number: US-JAZZ-2018-US-009478

PATIENT
  Age: 57 Year
  Sex: Male

DRUGS (1)
  1. XYREM [Suspect]
     Active Substance: SODIUM OXYBATE
     Indication: NARCOLEPSY

REACTIONS (2)
  - Cheyne-Stokes respiration [Recovered/Resolved]
  - Sleep apnoea syndrome [Recovered/Resolved]
